FAERS Safety Report 18695290 (Version 1)
Quarter: 2021Q1

REPORT INFORMATION
  Report Type: Report from Study
  Country: SE (occurrence: CN)
  Receive Date: 20210104
  Receipt Date: 20210104
  Transmission Date: 20210419
  Serious: Yes (Hospitalization)
  Sender: FDA-Public Use
  Company Number: CN-ELI_LILLY_AND_COMPANY-CN202012013476

PATIENT
  Age: 70 Year
  Sex: Male

DRUGS (27)
  1. MORPHINE SULFATE. [Concomitant]
     Active Substance: MORPHINE SULFATE
     Dosage: 20 MG, EVERY 12 HOURS
     Route: 048
     Dates: start: 20180328, end: 20180522
  2. VITAMIN B6 [Concomitant]
     Active Substance: PYRIDOXINE HYDROCHLORIDE
     Indication: GASTRIC DISORDER
     Dosage: 100 MG, DAILY
     Route: 042
     Dates: start: 20180402, end: 20180405
  3. CARBOPLATIN. [Suspect]
     Active Substance: CARBOPLATIN
     Indication: NON-SMALL CELL LUNG CANCER
     Dosage: 500 MG, MONTHLY (1/M)
     Route: 042
     Dates: start: 20180308, end: 20180516
  4. FOLIC ACID. [Concomitant]
     Active Substance: FOLIC ACID
     Indication: ANAEMIA
     Dosage: 400 UG, QID
     Route: 048
     Dates: start: 20180305
  5. METOCLOPRAMIDE DIHYDROCHLORIDE [Concomitant]
     Indication: GASTRIC DISORDER
     Dosage: 20 MG
     Route: 030
     Dates: start: 20180402, end: 20180405
  6. LACTULOSE. [Concomitant]
     Active Substance: LACTULOSE
     Indication: CONSTIPATION
     Dosage: 10 ML, TID
     Route: 048
     Dates: start: 20180309, end: 20180316
  7. APREPITANT. [Concomitant]
     Active Substance: APREPITANT
     Indication: PROPHYLAXIS OF NAUSEA AND VOMITING
     Dosage: 1 DOSAGE FORM, DAILY
     Route: 048
     Dates: start: 20180307, end: 20180309
  8. CIMETIDINE [Concomitant]
     Active Substance: CIMETIDINE
     Indication: GASTRIC DISORDER
     Dosage: 400 MG, DAILY
     Route: 042
     Dates: start: 20180402, end: 20180404
  9. OMEPRAZOLE SODIUM [Concomitant]
     Active Substance: OMEPRAZOLE SODIUM
     Indication: GASTRITIS EROSIVE
     Dosage: 40 MG, OTHER, ONCE
     Route: 042
     Dates: start: 20180211, end: 20180211
  10. FUROSEMIDE. [Concomitant]
     Active Substance: FUROSEMIDE
     Indication: DIURETIC THERAPY
     Dosage: 20 MG, EVERY 4 HRS
     Route: 042
     Dates: start: 20180308, end: 20180309
  11. TIOPRONIN [Concomitant]
     Active Substance: TIOPRONIN
     Indication: LIVER DISORDER
     Dosage: 200 MG, DAILY
     Route: 042
     Dates: start: 20180308, end: 20180312
  12. VITAMIN B12 [Concomitant]
     Active Substance: CYANOCOBALAMIN
     Indication: CHEMOTHERAPY SIDE EFFECT PROPHYLAXIS
     Dosage: 1000 UG
     Route: 030
     Dates: start: 20180307, end: 20180317
  13. GLYCYRRHETIC ACID [Concomitant]
     Indication: HEPATIC FUNCTION ABNORMAL
     Dosage: 200 MG, DAILY
     Route: 048
     Dates: start: 20180328, end: 20180406
  14. VITAMIN C [Concomitant]
     Active Substance: ASCORBIC ACID
     Indication: GASTRIC DISORDER
     Dosage: 1 G, DAILY
     Route: 042
     Dates: start: 20180402, end: 20180405
  15. PEMETREXED. [Suspect]
     Active Substance: PEMETREXED
     Indication: NON-SMALL CELL LUNG CANCER
     Dosage: 800 MG, MONTHLY (1/M)
     Route: 042
     Dates: start: 20180308, end: 20180704
  16. MORPHINE SULFATE. [Concomitant]
     Active Substance: MORPHINE SULFATE
     Indication: PAIN
     Dosage: 40 MG, EVERY 12 HOURS
     Route: 048
     Dates: start: 20180306, end: 20180522
  17. DEXAMETHASONE ACETATE [Concomitant]
     Active Substance: DEXAMETHASONE ACETATE
     Indication: HYPERSENSITIVITY
     Dosage: 3750 UG, BID
     Route: 048
     Dates: start: 20180307, end: 20190309
  18. DEXAMETHASONE ACETATE [Concomitant]
     Active Substance: DEXAMETHASONE ACETATE
     Dosage: 3750 UG, BID
     Route: 048
     Dates: start: 20180401, end: 20180403
  19. PALONOSETRON HYDROCHLORIDE. [Concomitant]
     Active Substance: PALONOSETRON HYDROCHLORIDE
     Indication: ANTIEMETIC SUPPORTIVE CARE
     Dosage: 250 UG, DAILY
     Route: 042
     Dates: start: 20180308, end: 20180312
  20. PALONOSETRON HYDROCHLORIDE. [Concomitant]
     Active Substance: PALONOSETRON HYDROCHLORIDE
     Dosage: 250 UG, DAILY
     Route: 042
     Dates: start: 20180403, end: 20180406
  21. MEGESTROL ACETATE. [Concomitant]
     Active Substance: MEGESTROL ACETATE
     Indication: APPETITE DISORDER
     Dosage: 160 UNK
     Route: 048
     Dates: start: 20180307, end: 20180317
  22. TIOPRONIN [Concomitant]
     Active Substance: TIOPRONIN
     Indication: HEPATIC FUNCTION ABNORMAL
     Dosage: 200 MG, DAILY
     Route: 042
     Dates: start: 20180328, end: 20180405
  23. ESTAZOLAM. [Concomitant]
     Active Substance: ESTAZOLAM
     Indication: SLEEP DISORDER THERAPY
     Dosage: 2 MG ONCE
     Route: 048
     Dates: start: 20180403, end: 20180403
  24. PANTOPRAZOLE SODIUM. [Concomitant]
     Active Substance: PANTOPRAZOLE SODIUM
     Indication: GASTRITIS EROSIVE
     Dosage: 40 MG
     Route: 042
     Dates: start: 20180308, end: 20180312
  25. MEGESTROL ACETATE. [Concomitant]
     Active Substance: MEGESTROL ACETATE
     Dosage: 160 MG, DAILY
     Route: 048
     Dates: start: 20180402, end: 20180417
  26. APREPITANT. [Concomitant]
     Active Substance: APREPITANT
     Dosage: 1 DOSAGE FORM, DAILY
     Route: 048
     Dates: start: 20180402, end: 20180404
  27. BICYCLOL [Concomitant]
     Active Substance: BICYCLOL
     Indication: HEPATIC FUNCTION ABNORMAL
     Dosage: 50 MG, TID
     Route: 048
     Dates: start: 20180328, end: 20180406

REACTIONS (4)
  - Aspartate aminotransferase increased [Recovered/Resolved]
  - Blood alkaline phosphatase increased [Recovered/Resolved]
  - Gamma-glutamyltransferase increased [Recovering/Resolving]
  - Alanine aminotransferase increased [Recovering/Resolving]

NARRATIVE: CASE EVENT DATE: 20180605
